FAERS Safety Report 24939858 (Version 1)
Quarter: 2025Q1

REPORT INFORMATION
  Report Type: Spontaneous
  Country: BR (occurrence: BR)
  Receive Date: 20250207
  Receipt Date: 20250207
  Transmission Date: 20250409
  Serious: Yes (Other)
  Sender: BEIGENE
  Company Number: BR-BEIGENE-BGN-2025-001841

PATIENT

DRUGS (1)
  1. BRUKINSA [Suspect]
     Active Substance: ZANUBRUTINIB
     Indication: Marginal zone lymphoma
     Route: 065

REACTIONS (2)
  - Cerebrovascular accident [Unknown]
  - Cryptococcosis [Unknown]
